FAERS Safety Report 9099376 (Version 1)
Quarter: 2013Q1

REPORT INFORMATION
  Report Type: Report from Study
  Country: US (occurrence: US)
  Receive Date: 20130214
  Receipt Date: 20130214
  Transmission Date: 20140127
  Serious: Yes (Other)
  Sender: FDA-Public Use
  Company Number: US-JNJFOC-20130200419

PATIENT
  Sex: 0

DRUGS (1)
  1. STELARA [Suspect]
     Indication: PSORIATIC ARTHROPATHY
     Route: 058
     Dates: start: 20121221

REACTIONS (6)
  - Psoriasis [Unknown]
  - Weight decreased [Unknown]
  - Liver function test abnormal [Unknown]
  - Glossodynia [Unknown]
  - Dysgeusia [Unknown]
  - Decreased appetite [Unknown]
